FAERS Safety Report 9988223 (Version 2)
Quarter: 2014Q1

REPORT INFORMATION
  Report Type: Spontaneous
  Country: RU (occurrence: RU)
  Receive Date: 20140309
  Receipt Date: 20140309
  Transmission Date: 20141002
  Serious: Yes (Life-Threatening)
  Sender: FDA-Public Use
  Company Number: RU-009507513-1312RUS003439

PATIENT
  Age: 79 Year
  Sex: Male
  Weight: 84 kg

DRUGS (9)
  1. JANUMET [Suspect]
     Indication: TYPE 2 DIABETES MELLITUS
     Dosage: 1 TABLET TWICE PER DAY
     Route: 048
     Dates: start: 201308, end: 2013
  2. JANUMET [Suspect]
     Dosage: 1 TABLET TWICE PER DAY
     Route: 048
     Dates: start: 20131015, end: 20131115
  3. GALVUS MET [Suspect]
     Dosage: 50/1000 1 TABLET TWICE PER DAY
     Route: 048
     Dates: start: 2010
  4. GALVUS MET [Suspect]
     Dosage: UNK
     Route: 048
     Dates: start: 2013
  5. GALVUS MET [Suspect]
     Dosage: UNK
     Route: 048
     Dates: start: 20131115
  6. PRESTARIUM (PERINDOPRIL ARGININE) [Concomitant]
     Dosage: 5 MG PER DAY
     Route: 048
  7. PANANGIN [Concomitant]
     Indication: MYOCARDIAL ISCHAEMIA
     Dosage: 1 TABLET PER DAY
     Route: 048
     Dates: start: 201301
  8. CONCOR [Concomitant]
     Dosage: 5 MG PER DAY
  9. TORVACARD [Concomitant]
     Indication: DYSLIPIDAEMIA
     Dosage: 1 TABLET 10MG PER DAY
     Route: 048
     Dates: start: 201301

REACTIONS (3)
  - Blood pressure increased [Recovered/Resolved]
  - Blood pressure increased [Recovered/Resolved]
  - Drug eruption [Unknown]
